FAERS Safety Report 4638328-2 (Version None)
Quarter: 2005Q2

REPORT INFORMATION
  Report Type: 
  Country: None (occurrence: None)
  Receive Date: 20050415
  Receipt Date: 20050401
  Transmission Date: 20051028
  Serious: Yes (Hospitalization)
  Sender: FDA-Public Use
  Company Number: EM2005-0181

PATIENT
  Age: 66 Year
  Sex: Male
  Weight: 45 kg

DRUGS (10)
  1. MACROLIN [Suspect]
     Indication: HIV INFECTION
     Dosage: SEE IMAGE
     Route: 058
     Dates: start: 20001101, end: 20010701
  2. MACROLIN [Suspect]
     Indication: HIV INFECTION
     Dosage: SEE IMAGE
     Route: 058
     Dates: start: 20030501, end: 20031001
  3. VIDEX [Suspect]
     Indication: HIV INFECTION
     Dosage: 400 MG, QD, ORAL
     Route: 048
     Dates: start: 20000101, end: 20041215
  4. INVIRASE [Suspect]
     Indication: HIV INFECTION
     Dosage: 800 MG, QD, ORAL
     Route: 048
     Dates: end: 20041216
  5. NORVIR [Suspect]
     Indication: HIV INFECTION
     Dosage: SEE IMAGE
     Route: 048
     Dates: end: 20050112
  6. NORVIR [Suspect]
     Indication: HIV INFECTION
     Dosage: SEE IMAGE
     Route: 048
     Dates: start: 20050215
  7. ZIAGEN [Suspect]
     Indication: HIV INFECTION
     Dosage: 300 MG, QD, ORAL
     Route: 048
     Dates: end: 20050107
  8. EPIVIR [Concomitant]
  9. TELZIR [Concomitant]
  10. EFAVIRENZ (EFAVIRENZ) [Concomitant]

REACTIONS (22)
  - ABDOMINAL PAIN [None]
  - ASCITES [None]
  - ASTHENIA [None]
  - BLOOD LACTIC ACID INCREASED [None]
  - C-REACTIVE PROTEIN INCREASED [None]
  - CHOLESTASIS [None]
  - COLONIC POLYP [None]
  - CONJUNCTIVITIS [None]
  - COORDINATION ABNORMAL [None]
  - DIARRHOEA [None]
  - DRUG TOXICITY [None]
  - FOCAL NODULAR HYPERPLASIA [None]
  - HEPATIC FIBROSIS [None]
  - HYPERKERATOSIS [None]
  - MITOCHONDRIAL TOXICITY [None]
  - NEUROPATHY PERIPHERAL [None]
  - OVERDOSE [None]
  - PORTAL HYPERTENSION [None]
  - RASH ERYTHEMATOUS [None]
  - SKIN LESION [None]
  - STEATORRHOEA [None]
  - VARICES OESOPHAGEAL [None]
